FAERS Safety Report 8076493-8 (Version None)
Quarter: 2012Q1

REPORT INFORMATION
  Report Type: 
  Country: None (occurrence: None)
  Receive Date: 20120127
  Receipt Date: 20120117
  Transmission Date: 20120608
  Serious: Yes (Hospitalization)
  Sender: FDA-Public Use
  Company Number: AU-UCBSA-050091

PATIENT
  Age: 28 Year
  Sex: Female

DRUGS (4)
  1. KEPPRA [Suspect]
     Indication: EPILEPSY
     Dosage: 4 DOSE UNSPECIFIED DAILY
     Dates: start: 20110407, end: 20110401
  2. TOPIRAMATE [Concomitant]
  3. KEPPRA [Suspect]
     Dosage: 4 DOSE UNSPECIFIED DAILY
     Dates: start: 20110401, end: 20110412
  4. SERTRALINE HYDROCHLORIDE [Concomitant]

REACTIONS (3)
  - CONVULSION [None]
  - TONGUE ULCERATION [None]
  - MOUTH ULCERATION [None]
